FAERS Safety Report 9633253 (Version 3)
Quarter: 2014Q1

REPORT INFORMATION
  Report Type: Spontaneous
  Country: GB (occurrence: None)
  Receive Date: 20131017
  Receipt Date: 20140328
  Transmission Date: 20141002
  Serious: Yes (Other)
  Sender: FDA-Public Use
  Company Number: AUR-APL-2013-08584

PATIENT
  Age: 16 Year
  Sex: Female

DRUGS (5)
  1. OLANZAPINE [Suspect]
     Indication: AUTISM SPECTRUM DISORDER
  2. OLANZAPINE [Suspect]
     Indication: MAJOR DEPRESSION
  3. OLANZAPINE [Suspect]
     Indication: POST-TRAUMATIC STRESS DISORDER
  4. OLANZAPINE [Suspect]
     Indication: PSYCHOTIC DISORDER
  5. OLANZAPINE [Suspect]
     Indication: MAJOR DEPRESSION

REACTIONS (2)
  - Convulsion [None]
  - Hallucination, auditory [None]
